FAERS Safety Report 6842086-0 (Version None)
Quarter: 2010Q3

REPORT INFORMATION
  Report Type: 
  Country: None (occurrence: None)
  Receive Date: 20100714
  Receipt Date: 20070815
  Transmission Date: 20110219
  Serious: Yes (Other)
  Sender: FDA-Public Use
  Company Number: US-PFIZER INC-2007060600

PATIENT
  Sex: Male
  Weight: 81.6 kg

DRUGS (2)
  1. CHANTIX [Suspect]
     Indication: EX-TOBACCO USER
     Dates: start: 20070616, end: 20070711
  2. AMBIEN [Suspect]

REACTIONS (6)
  - AMNESIA [None]
  - DISORIENTATION [None]
  - DYSARTHRIA [None]
  - INSOMNIA [None]
  - INTENTIONAL DRUG MISUSE [None]
  - VISUAL IMPAIRMENT [None]
